FAERS Safety Report 13616840 (Version 2)
Quarter: 2018Q2

REPORT INFORMATION
  Report Type: Spontaneous
  Country: US (occurrence: US)
  Receive Date: 20170606
  Receipt Date: 20180517
  Transmission Date: 20180711
  Serious: No
  Sender: FDA-Public Use
  Company Number: US-SA-2016SA169406

PATIENT
  Age: 79 Year
  Sex: Female

DRUGS (4)
  1. LANTUS [Suspect]
     Active Substance: INSULIN GLARGINE
     Indication: TYPE 2 DIABETES MELLITUS
     Dosage: DOSE:10 UNIT(S)
     Route: 051
     Dates: start: 2012
  2. LANTUS [Suspect]
     Active Substance: INSULIN GLARGINE
     Indication: TYPE 2 DIABETES MELLITUS
     Dosage: DOSE:22 UNIT(S)
     Route: 051
  3. LANTUS [Suspect]
     Active Substance: INSULIN GLARGINE
     Indication: TYPE 2 DIABETES MELLITUS
     Dosage: DOSE:22 UNIT(S)
     Route: 051
  4. ZOCOR [Suspect]
     Active Substance: SIMVASTATIN
     Route: 065

REACTIONS (10)
  - Abdominal pain upper [Unknown]
  - Pruritus [Unknown]
  - Muscle spasms [Not Recovered/Not Resolved]
  - Rash [Unknown]
  - Hyperhidrosis [Unknown]
  - Glycosylated haemoglobin increased [Unknown]
  - Vertigo [Unknown]
  - Breast enlargement [Unknown]
  - Cold sweat [Unknown]
  - Blood glucose increased [Unknown]

NARRATIVE: CASE EVENT DATE: 20170428
